FAERS Safety Report 6081193-X (Version None)
Quarter: 2009Q1

REPORT INFORMATION
  Report Type: 
  Country: None (occurrence: None)
  Receive Date: 20090213
  Receipt Date: 20090203
  Transmission Date: 20090719
  Serious: Yes (Death, Other)
  Sender: FDA-Public Use
  Company Number: 2009US000253

PATIENT
  Age: 66 Year
  Sex: Female

DRUGS (2)
  1. PROGRAF [Suspect]
     Indication: LIVER TRANSPLANT
     Dates: start: 20070101
  2. CORTICOSTEROID NOS (CORTICOSTEROID NOS) [Concomitant]

REACTIONS (8)
  - BILE DUCT OBSTRUCTION [None]
  - CYTOMEGALOVIRUS VIRAEMIA [None]
  - HEPATITIS C ANTIBODY POSITIVE [None]
  - HIV TEST POSITIVE [None]
  - LIVER TRANSPLANT REJECTION [None]
  - RENAL FAILURE ACUTE [None]
  - SUBDURAL HAEMATOMA [None]
  - UROSEPSIS [None]
